FAERS Safety Report 16777164 (Version 2)
Quarter: 2019Q3

REPORT INFORMATION
  Report Type: Report from Study
  Country: US (occurrence: US)
  Receive Date: 20190905
  Receipt Date: 20190906
  Transmission Date: 20191005
  Serious: No
  Sender: FDA-Public Use
  Company Number: US-EMD SERONO-9102094

PATIENT
  Age: 46 Year
  Sex: Female

DRUGS (1)
  1. MAVENCLAD [Suspect]
     Active Substance: CLADRIBINE
     Indication: MULTIPLE SCLEROSIS
     Dosage: TWO TABLETS (EACH TABLET 10 MG) ON DAYS 1 TO 5
     Route: 048
     Dates: start: 20190628

REACTIONS (2)
  - Tremor [Recovering/Resolving]
  - Fatigue [Unknown]

NARRATIVE: CASE EVENT DATE: 20190629
